FAERS Safety Report 17517863 (Version 1)
Quarter: 2020Q1

REPORT INFORMATION
  Report Type: Spontaneous
  Country: US (occurrence: US)
  Receive Date: 20200309
  Receipt Date: 20200309
  Transmission Date: 20200409
  Serious: No
  Sender: FDA-Public Use
  Company Number: US-JNJFOC-20200301796

PATIENT
  Sex: Female
  Weight: 98.97 kg

DRUGS (1)
  1. INVEGA [Suspect]
     Active Substance: PALIPERIDONE
     Indication: BIPOLAR I DISORDER
     Route: 048
     Dates: start: 20200106

REACTIONS (1)
  - Tic [Not Recovered/Not Resolved]

NARRATIVE: CASE EVENT DATE: 2020
